FAERS Safety Report 20735927 (Version 3)
Quarter: 2022Q2

REPORT INFORMATION
  Report Type: Report from Study
  Country: US (occurrence: US)
  Receive Date: 20220421
  Receipt Date: 20220426
  Transmission Date: 20220721
  Serious: Yes (Other)
  Sender: FDA-Public Use
  Company Number: US-NOVARTISTESTPH-NVSC2022US092675

PATIENT
  Age: 61 Year
  Sex: Male

DRUGS (1)
  1. ENTRESTO [Suspect]
     Active Substance: SACUBITRIL\VALSARTAN
     Indication: Product used for unknown indication
     Dosage: UNK UNK, BID
     Route: 048
     Dates: start: 20220328, end: 20220420

REACTIONS (4)
  - Diabetes mellitus [Unknown]
  - Blood glucose decreased [Unknown]
  - Gastroenteritis [Unknown]
  - Vomiting [Unknown]

NARRATIVE: CASE EVENT DATE: 20220328
